FAERS Safety Report 8517652 (Version 7)
Quarter: 2013Q2

REPORT INFORMATION
  Report Type: Report from Study
  Country: JP (occurrence: JP)
  Receive Date: 20120417
  Receipt Date: 20130510
  Transmission Date: 20140414
  Serious: Yes (Hospitalization)
  Sender: FDA-Public Use
  Company Number: JP-VERTEX PHARMACEUTICAL INC.-AE-2012-005160

PATIENT
  Age: 63 Year
  Sex: Male

DRUGS (8)
  1. VX-950 (TELAPREVIR) [Suspect]
     Indication: CHRONIC HEPATITIS C
     Dosage: 2250 MG, UNK
     Route: 048
     Dates: start: 20120224, end: 20120322
  2. VX-950 (TELAPREVIR) [Suspect]
     Dosage: 1500 MG, UNK
     Route: 048
     Dates: start: 20120323, end: 20120329
  3. REBETOL [Suspect]
     Indication: CHRONIC HEPATITIS C
     Dosage: 600 MG, UNK
     Route: 048
     Dates: start: 20120224, end: 20120315
  4. REBETOL [Suspect]
     Dosage: 400 MG, UNK
     Route: 048
     Dates: start: 20120316, end: 20120322
  5. REBETOL [Suspect]
     Dosage: 200 MG, QD
     Route: 048
     Dates: start: 20120323, end: 20120329
  6. PEGINTRON [Suspect]
     Indication: CHRONIC HEPATITIS C
     Dosage: 1.5 ?G/KG, QW
     Route: 058
     Dates: start: 20120224, end: 20120322
  7. PEGINTRON [Suspect]
     Dosage: 0.72 ?G/KG, UNK
     Route: 058
     Dates: start: 20120323, end: 20120329
  8. CALONAL [Concomitant]
     Route: 048
     Dates: start: 20120229, end: 20120302

REACTIONS (4)
  - Depression [Recovered/Resolved]
  - Decreased appetite [Recovered/Resolved]
  - Anaemia [Recovered/Resolved]
  - Nausea [Recovered/Resolved]
